FAERS Safety Report 9643696 (Version 1)
Quarter: 2013Q4

REPORT INFORMATION
  Report Type: Spontaneous
  Country: CN (occurrence: CN)
  Receive Date: 20131024
  Receipt Date: 20131024
  Transmission Date: 20140711
  Serious: Yes (Other)
  Sender: FDA-Public Use
  Company Number: CN-BRISTOL-MYERS SQUIBB COMPANY-19577378

PATIENT
  Age: 56 Year
  Sex: Female

DRUGS (1)
  1. TAXOL [Suspect]
     Dosage: 3 TREATMENTS

REACTIONS (3)
  - Asphyxia [Recovering/Resolving]
  - Heart rate increased [Recovering/Resolving]
  - Chest discomfort [Recovering/Resolving]
